FAERS Safety Report 18945846 (Version 3)
Quarter: 2021Q1

REPORT INFORMATION
  Report Type: Spontaneous
  Country: AR (occurrence: AR)
  Receive Date: 20210226
  Receipt Date: 20210316
  Transmission Date: 20210420
  Serious: Yes (Other)
  Sender: FDA-Public Use
  Company Number: AR-BRISTOL-MYERS SQUIBB COMPANY-BMS-2021-019353

PATIENT
  Age: 84 Year
  Sex: Male
  Weight: 63 kg

DRUGS (7)
  1. ELIQUIS [Suspect]
     Active Substance: APIXABAN
     Indication: CEREBROVASCULAR ACCIDENT PROPHYLAXIS
     Dosage: UNK, DAILY
     Route: 065
     Dates: start: 201607
  2. NOSTER [AMLODIPINE BESILATE;VALSARTAN] [Suspect]
     Active Substance: AMLODIPINE BESYLATE\VALSARTAN
     Indication: PRODUCT USED FOR UNKNOWN INDICATION
     Route: 065
  3. PGB [Suspect]
     Active Substance: PREGABALIN
     Indication: PRODUCT USED FOR UNKNOWN INDICATION
     Dosage: UNK, DAILY
     Route: 065
  4. AMIODARONE [Suspect]
     Active Substance: AMIODARONE
     Indication: PRODUCT USED FOR UNKNOWN INDICATION
     Dosage: UNK,DAILY
     Route: 065
  5. ALPLAX [Suspect]
     Active Substance: ALPRAZOLAM
     Indication: CEREBROVASCULAR ACCIDENT PROPHYLAXIS
     Dosage: UNK, DAILY
     Route: 065
  6. ESCITALOPRAM OXALATE. [Suspect]
     Active Substance: ESCITALOPRAM OXALATE
     Indication: PRODUCT USED FOR UNKNOWN INDICATION
     Dosage: UNK, DAILY
     Route: 065
  7. ROSUVAST [Suspect]
     Active Substance: ROSUVASTATIN CALCIUM
     Indication: PRODUCT USED FOR UNKNOWN INDICATION
     Dosage: UNK, DAILY
     Route: 065

REACTIONS (18)
  - Renal impairment [Unknown]
  - Atrial fibrillation [Unknown]
  - Blood creatinine increased [Unknown]
  - Low density lipoprotein increased [Recovered/Resolved]
  - Monocyte count increased [Recovered/Resolved]
  - Monocyte count decreased [Recovered/Resolved]
  - Creatinine renal clearance decreased [Unknown]
  - Blood cholesterol increased [Recovered/Resolved]
  - Eosinophil count increased [Recovered/Resolved]
  - Activated partial thromboplastin time shortened [Recovered/Resolved]
  - Neutrophil count increased [Recovered/Resolved]
  - Blood parathyroid hormone increased [Unknown]
  - Platelet count decreased [Recovered/Resolved]
  - Oedema peripheral [Unknown]
  - Red blood cell count decreased [Recovered/Resolved]
  - Bilirubin conjugated increased [Recovered/Resolved]
  - Blood urea increased [Unknown]
  - Blood 25-hydroxycholecalciferol decreased [Unknown]

NARRATIVE: CASE EVENT DATE: 201610
